FAERS Safety Report 9906696 (Version 2)
Quarter: 2014Q1

REPORT INFORMATION
  Report Type: Spontaneous
  Country: US (occurrence: US)
  Receive Date: 20140218
  Receipt Date: 20140307
  Transmission Date: 20141002
  Serious: Yes (Other)
  Sender: FDA-Public Use
  Company Number: US-PFIZER INC-2014041797

PATIENT
  Age: 79 Year
  Sex: Female

DRUGS (2)
  1. LIPITOR [Suspect]
     Dosage: UNK
  2. TIKOSYN [Suspect]
     Dosage: UNK

REACTIONS (4)
  - Suicidal ideation [Unknown]
  - Hypertension [Unknown]
  - Pain [Unknown]
  - Hyperventilation [Unknown]
